FAERS Safety Report 5752373-5 (Version None)
Quarter: 2008Q2

REPORT INFORMATION
  Report Type: 
  Country: None (occurrence: None)
  Receive Date: 20080529
  Receipt Date: 20080222
  Transmission Date: 20081010
  Serious: Yes (Hospitalization)
  Sender: FDA-Public Use
  Company Number: BR-BAYER-200812207LA

PATIENT
  Age: 28 Year
  Sex: Female
  Weight: 56 kg

DRUGS (1)
  1. YASMIN [Suspect]
     Indication: ORAL CONTRACEPTION
     Route: 048
     Dates: start: 20070901

REACTIONS (5)
  - FLUID INTAKE REDUCED [None]
  - METRORRHAGIA [None]
  - NAUSEA [None]
  - PHARYNGITIS [None]
  - VULVOVAGINAL BURNING SENSATION [None]
